FAERS Safety Report 15490325 (Version 1)
Quarter: 2018Q4

REPORT INFORMATION
  Report Type: Spontaneous
  Country: AU (occurrence: AU)
  Receive Date: 20181011
  Receipt Date: 20181011
  Transmission Date: 20190205
  Serious: No
  Sender: FDA-Public Use
  Company Number: AU-MARKSANS PHARMA LIMITED-2055948

PATIENT
  Sex: Female

DRUGS (1)
  1. IBUPROFEN MOLECULE FROM AUSTRALIA MARKET [Suspect]
     Active Substance: IBUPROFEN
     Route: 048

REACTIONS (1)
  - Drug ineffective [None]
